FAERS Safety Report 9748839 (Version 1)
Quarter: 2013Q4

REPORT INFORMATION
  Report Type: Spontaneous
  Country: US (occurrence: None)
  Receive Date: 20131211
  Receipt Date: 20131211
  Transmission Date: 20140711
  Serious: Yes (Life-Threatening)
  Sender: FDA-Public Use
  Company Number: None

PATIENT
  Age: 26 Year
  Sex: Male

DRUGS (1)
  1. ENBREL 50 MG AMGEN [Suspect]
     Indication: PSORIASIS
     Route: 058
     Dates: start: 201205, end: 201305

REACTIONS (1)
  - Hodgkin^s disease [None]
